FAERS Safety Report 5098591-3 (Version None)
Quarter: 2006Q3

REPORT INFORMATION
  Report Type: 
  Country: None (occurrence: None)
  Receive Date: 20060907
  Receipt Date: 20060626
  Transmission Date: 20061208
  Serious: Yes (Other)
  Sender: FDA-Public Use
  Company Number: PHNU2006DE02392

PATIENT
  Sex: Female
  Weight: 70 kg

DRUGS (4)
  1. TEGRETOL [Suspect]
     Indication: PARTIAL SEIZURES
     Dosage: 300 MG IN THE EVENING
     Route: 048
     Dates: start: 19890101, end: 20060701
  2. BISOPROLOL FUMARATE [Concomitant]
     Indication: HYPERTENSION
     Dosage: 1 DF, QD
     Dates: start: 19900101
  3. L-THYROXIN [Concomitant]
     Dates: start: 20050101
  4. LEXOTANIL [Concomitant]

REACTIONS (4)
  - INTRAOCULAR PRESSURE INCREASED [None]
  - OPTIC ATROPHY [None]
  - VISUAL DISTURBANCE [None]
  - VISUAL FIELD DEFECT [None]
